FAERS Safety Report 12262386 (Version 1)
Quarter: 2016Q2

REPORT INFORMATION
  Report Type: Spontaneous
  Country: None (occurrence: None)
  Receive Date: 20160412
  Receipt Date: 20160412
  Transmission Date: 20160815
  Serious: No
  Sender: FDA-Public Use
  Company Number: None

PATIENT
  Sex: Female

DRUGS (2)
  1. HUMALOG [Suspect]
     Active Substance: INSULIN LISPRO
  2. TOUJEO [Suspect]
     Active Substance: INSULIN GLARGINE

REACTIONS (7)
  - Type 1 diabetes mellitus [None]
  - Musculoskeletal disorder [None]
  - Erythema [None]
  - Thirst [None]
  - Joint swelling [None]
  - Blood glucose increased [None]
  - Post procedural complication [None]
